FAERS Safety Report 25814709 (Version 1)
Quarter: 2025Q3

REPORT INFORMATION
  Report Type: Spontaneous
  Country: CN (occurrence: CN)
  Receive Date: 20250917
  Receipt Date: 20250917
  Transmission Date: 20251021
  Serious: Yes (Life-Threatening)
  Sender: BEIGENE
  Company Number: CN-BEIGENE-BGN-2025-015846

PATIENT
  Age: 67 Year
  Weight: 65.5 kg

DRUGS (4)
  1. TISLELIZUMAB [Suspect]
     Active Substance: TISLELIZUMAB
     Indication: Lung neoplasm malignant
  2. TISLELIZUMAB [Suspect]
     Active Substance: TISLELIZUMAB
     Route: 041
  3. TISLELIZUMAB [Suspect]
     Active Substance: TISLELIZUMAB
     Route: 041
  4. TISLELIZUMAB [Suspect]
     Active Substance: TISLELIZUMAB

REACTIONS (6)
  - Chest discomfort [Recovered/Resolved]
  - Tachypnoea [Recovered/Resolved]
  - Palpitations [Recovered/Resolved]
  - Flushing [Recovered/Resolved]
  - Cough [Recovered/Resolved]
  - Rash pruritic [Recovered/Resolved]
